FAERS Safety Report 4539353-2 (Version None)
Quarter: 2004Q4

REPORT INFORMATION
  Report Type: 
  Country: None (occurrence: None)
  Receive Date: 20041222
  Receipt Date: 20041213
  Transmission Date: 20050328
  Serious: Yes (Other)
  Sender: FDA-Public Use
  Company Number: 2004113971

PATIENT
  Age: 58 Year

DRUGS (2)
  1. AROMASIN [Suspect]
     Indication: ILL-DEFINED DISORDER
     Dosage: ORAL
     Route: 048
  2. TAMOXIFEN (TAMOXIFEN) [Suspect]
     Indication: ILL-DEFINED DISORDER

REACTIONS (1)
  - UTERINE CANCER [None]
